FAERS Safety Report 9871202 (Version 1)
Quarter: 2014Q1

REPORT INFORMATION
  Report Type: Spontaneous
  Country: US (occurrence: US)
  Receive Date: 20140205
  Receipt Date: 20140205
  Transmission Date: 20141002
  Serious: No
  Sender: FDA-Public Use
  Company Number: US-TEVA-461095USA

PATIENT
  Age: 43 Year
  Sex: Female
  Weight: 79 kg

DRUGS (3)
  1. COPAXONE [Suspect]
     Indication: MULTIPLE SCLEROSIS
     Dates: start: 2009, end: 201108
  2. COPAXONE [Suspect]
     Dates: start: 201112
  3. ASPIRIN [Concomitant]
     Indication: LIPIDS ABNORMAL
     Dosage: 81 MILLIGRAM DAILY;
     Route: 048

REACTIONS (1)
  - Alopecia [Not Recovered/Not Resolved]
